FAERS Safety Report 7470510 (Version 2)
Quarter: 2013Q2

REPORT INFORMATION
  Report Type: Spontaneous
  Country: US (occurrence: None)
  Receive Date: 20100512
  Receipt Date: 20130313
  Transmission Date: 20140414
  Serious: No
  Sender: FDA-Public Use
  Company Number: 1000012686

PATIENT
  Age: 48 Year
  Sex: Female

DRUGS (1)
  1. SAVELLA [Suspect]
     Dosage: ORAL
     Route: 048

REACTIONS (1)
  - HEPATIC ENZYME INCREASED [None]
